FAERS Safety Report 8123210-9 (Version None)
Quarter: 2012Q1

REPORT INFORMATION
  Report Type: 
  Country: None (occurrence: None)
  Receive Date: 20120208
  Receipt Date: 20120131
  Transmission Date: 20120608
  Serious: Yes (Other)
  Sender: FDA-Public Use
  Company Number: PHHY2012BE008764

PATIENT
  Age: 34 Year
  Sex: Female
  Weight: 65 kg

DRUGS (2)
  1. ACETAMINOPHEN [Suspect]
     Dosage: 20 G, UNK
  2. VENLAFAXINE [Suspect]
     Dosage: 7.5 G AND 3.75 G

REACTIONS (20)
  - SEROTONIN SYNDROME [None]
  - MYDRIASIS [None]
  - OVERDOSE [None]
  - UNRESPONSIVE TO STIMULI [None]
  - HYPOTENSION [None]
  - INCORRECT DOSE ADMINISTERED [None]
  - CLONUS [None]
  - RENAL FAILURE ACUTE [None]
  - OLIGURIA [None]
  - CONVULSION [None]
  - BLOOD LACTIC ACID INCREASED [None]
  - CARDIOMYOPATHY [None]
  - CYP2D6 POLYMORPHISM [None]
  - SUBENDOCARDIAL ISCHAEMIA [None]
  - HYPERHIDROSIS [None]
  - PNEUMONIA [None]
  - RHABDOMYOLYSIS [None]
  - PYREXIA [None]
  - HYPERTONIA [None]
  - DRUG LEVEL INCREASED [None]
